FAERS Safety Report 4869701-5 (Version None)
Quarter: 2005Q4

REPORT INFORMATION
  Report Type: 
  Country: None (occurrence: None)
  Receive Date: 20051223
  Receipt Date: 20051219
  Transmission Date: 20060501
  Serious: Yes (Other)
  Sender: FDA-Public Use
  Company Number: ESWYE044311OCT05

PATIENT
  Age: 54 Year
  Sex: Male

DRUGS (3)
  1. VENLAFAXINE HCL [Suspect]
     Indication: MAJOR DEPRESSION
     Dosage: 225 MG 1X PER 1 DAY, ORAL
     Route: 048
     Dates: start: 20020101
  2. DIZAEPAM (DIAZEPAM) [Concomitant]
  3. LORAZEPAM [Concomitant]

REACTIONS (6)
  - ALCOHOLISM [None]
  - CHOLESTASIS [None]
  - CHRONIC HEPATITIS [None]
  - NORMOCHROMIC NORMOCYTIC ANAEMIA [None]
  - OEDEMA PERIPHERAL [None]
  - WHITE BLOOD CELL COUNT INCREASED [None]
